FAERS Safety Report 5479407-X (Version None)
Quarter: 2007Q4

REPORT INFORMATION
  Report Type: 
  Country: None (occurrence: None)
  Receive Date: 20071003
  Receipt Date: 20071003
  Transmission Date: 20080405
  Serious: Yes (Hospitalization, Disabling)
  Sender: FDA-Public Use
  Company Number: None

PATIENT
  Age: 72 Year
  Sex: Female
  Weight: 64 kg

DRUGS (8)
  1. CO-TRIMOXAZOLE [Suspect]
     Indication: URINARY TRACT INFECTION
     Dosage: PO
     Route: 048
     Dates: start: 20070705, end: 20070719
  2. DICLOFENAC [Suspect]
     Indication: MUSCULOSKELETAL PAIN
     Dosage: 50MG  THREE TIMES DAILY  PO
     Route: 048
     Dates: start: 20070705, end: 20070719
  3. ENALAPRIL MALEATE [Concomitant]
  4. ATENOLOL [Concomitant]
  5. ACETAMINOPHEN [Concomitant]
  6. METOCLOPRAMIDE [Concomitant]
  7. GLYBURIDE [Concomitant]
  8. ATORVASTATIN CALCIUM [Concomitant]

REACTIONS (9)
  - ANAEMIA [None]
  - BLOOD CREATININE INCREASED [None]
  - BLOOD UREA INCREASED [None]
  - DIALYSIS [None]
  - FATIGUE [None]
  - GLOMERULAR FILTRATION RATE ABNORMAL [None]
  - MALAISE [None]
  - NAUSEA [None]
  - VOMITING [None]
